FAERS Safety Report 11400515 (Version 1)
Quarter: 2015Q3

REPORT INFORMATION
  Report Type: Spontaneous
  Country: EE (occurrence: None)
  Receive Date: 20150819
  Receipt Date: 20150819
  Transmission Date: 20151125
  Serious: Yes (Other)
  Sender: FDA-Public Use
  Company Number: TIR-2015-0031

PATIENT
  Age: 17 Year
  Sex: Female

DRUGS (2)
  1. LEVOTHYROXINE. [Suspect]
     Active Substance: LEVOTHYROXINE
  2. LEVOTHYROXINE (LEVOTHYROXINE) (LEVOTHYROXINE) [Suspect]
     Active Substance: LEVOTHYROXINE

REACTIONS (1)
  - Hyperthyroidism [None]
